FAERS Safety Report 21582958 (Version 1)
Quarter: 2022Q4

REPORT INFORMATION
  Report Type: Spontaneous
  Country: US (occurrence: None)
  Receive Date: 20221110
  Receipt Date: 20221110
  Transmission Date: 20230113
  Serious: Yes (Hospitalization)
  Sender: FDA-Public Use
  Company Number: None

PATIENT
  Age: 63 Year
  Sex: Male
  Weight: 72.5 kg

DRUGS (2)
  1. CARBOPLATIN [Suspect]
     Active Substance: CARBOPLATIN
     Dates: end: 20221003
  2. TAXOL [Suspect]
     Active Substance: PACLITAXEL
     Dates: end: 20221107

REACTIONS (2)
  - Wheezing [None]
  - Positive airway pressure therapy [None]

NARRATIVE: CASE EVENT DATE: 20221108
